FAERS Safety Report 8602926-1 (Version None)
Quarter: 2012Q3

REPORT INFORMATION
  Report Type: 
  Country: None (occurrence: None)
  Receive Date: 20120817
  Receipt Date: 20120814
  Transmission Date: 20120928
  Serious: Yes (Death, Hospitalization, Other)
  Sender: FDA-Public Use
  Company Number: SE-B.I. PHARMACEUTICALS,INC./RIDGEFIELD-2012-SW-00246SW

PATIENT
  Age: 79 Year
  Sex: Male

DRUGS (2)
  1. PREDNISOLONE [Concomitant]
  2. PRADAXA [Suspect]
     Indication: ATRIAL FIBRILLATION
     Dosage: 220 MG
     Dates: start: 20120209, end: 20120320

REACTIONS (6)
  - LOWER GASTROINTESTINAL HAEMORRHAGE [None]
  - SEPSIS [None]
  - DEATH [None]
  - CEREBROVASCULAR ACCIDENT [None]
  - DIZZINESS [None]
  - PRESYNCOPE [None]
